FAERS Safety Report 7509600-3 (Version None)
Quarter: 2011Q2

REPORT INFORMATION
  Report Type: 
  Country: None (occurrence: None)
  Receive Date: 20110527
  Receipt Date: 20110524
  Transmission Date: 20111010
  Serious: Yes (Life-Threatening, Hospitalization)
  Sender: FDA-Public Use
  Company Number: US-GILEAD-2011-0039401

PATIENT
  Age: 77 Year
  Sex: Male

DRUGS (2)
  1. LETAIRIS [Suspect]
     Indication: PRODUCT USED FOR UNKNOWN INDICATION
     Route: 048
     Dates: start: 20080616
  2. COUMADIN [Concomitant]

REACTIONS (3)
  - HAEMORRHAGE [None]
  - GASTROINTESTINAL HAEMORRHAGE [None]
  - LOCALISED INFECTION [None]
